FAERS Safety Report 9761982 (Version 1)
Quarter: 2013Q4

REPORT INFORMATION
  Report Type: Spontaneous
  Country: KR (occurrence: None)
  Receive Date: 20131213
  Receipt Date: 20131213
  Transmission Date: 20140711
  Serious: Yes (Life-Threatening, Hospitalization)
  Sender: FDA-Public Use
  Company Number: SYM-2013-13699

PATIENT
  Age: 52 Year
  Sex: Female

DRUGS (4)
  1. FLUOROURACIL (FLUOROURACIL) (FLUOROURACIL) [Suspect]
     Indication: PAPILLARY THYROID CANCER
  2. OXALIPLATIN (OXALIPLATIN) (OXALIPLATIN) [Suspect]
     Indication: PAPILLARY THYROID CANCER
  3. LEUCOVORIN (FOLINIC ACID) (FOLINIC ACID) [Suspect]
     Indication: PAPILLARY THYROID CANCER
  4. MELOXICAM [Concomitant]

REACTIONS (2)
  - Interstitial lung disease [None]
  - Condition aggravated [None]
